FAERS Safety Report 7443554-3 (Version None)
Quarter: 2011Q2

REPORT INFORMATION
  Report Type: 
  Country: None (occurrence: None)
  Receive Date: 20110428
  Receipt Date: 20110415
  Transmission Date: 20111010
  Serious: Yes (Other)
  Sender: FDA-Public Use
  Company Number: US-AMGEN-US349727

PATIENT
  Age: 49 Year
  Sex: Female
  Weight: 116 kg

DRUGS (19)
  1. NPLATE [Suspect]
     Dosage: UNK
     Dates: start: 20090416
  2. NPLATE [Suspect]
     Indication: IDIOPATHIC THROMBOCYTOPENIC PURPURA
     Dosage: UNK UNK, QWK
     Route: 058
     Dates: start: 20090417, end: 20090521
  3. NPLATE [Suspect]
     Dosage: 720 A?G/KG, UNK
     Dates: end: 20010521
  4. LEVOTHYROXINE SODIUM [Concomitant]
     Dosage: 188 A?G, QD
     Route: 048
  5. METHYLPREDNISOLONE SODIUM SUCCINATE [Concomitant]
  6. AMINOCAPROIC ACID [Concomitant]
     Dosage: UNK UNK, UNK
     Dates: start: 20090416, end: 20090527
  7. DEXAMETHASONE [Suspect]
     Dosage: UNK UNK, UNK
     Dates: start: 20090413, end: 20090527
  8. RITUXIMAB [Concomitant]
     Dosage: UNK UNK, UNK
  9. ACETAMINOPHEN AND HYDROCODONE BITARTRATE [Concomitant]
     Dosage: UNK UNK, PRN
     Route: 048
  10. CORTICOSTEROID NOS [Concomitant]
     Dosage: UNK UNK, UNK
     Dates: start: 20090101
  11. AZATHIOPRINE [Concomitant]
     Dosage: UNK UNK, UNK
     Dates: start: 20090420, end: 20090527
  12. OXYCODONE HCL [Concomitant]
  13. TRAMADOL [Concomitant]
     Dosage: 50 MG, PRN
     Route: 048
  14. NPLATE [Suspect]
     Dosage: UNK UNK, QWK
     Route: 058
     Dates: start: 20090417, end: 20090521
  15. NPLATE [Suspect]
     Dosage: UNK UNK, QWK
     Route: 058
     Dates: start: 20090417, end: 20090521
  16. IMMUNOGLOBULINS [Concomitant]
     Dosage: UNK UNK, UNK
     Dates: start: 20090101
  17. NPLATE [Suspect]
     Dosage: UNK UNK, QWK
     Route: 058
     Dates: start: 20090417, end: 20090521
  18. NPLATE [Suspect]
     Dosage: UNK UNK, QWK
     Route: 058
     Dates: start: 20090417, end: 20090521
  19. MYCOPHENOLATE MOFETIL [Concomitant]

REACTIONS (8)
  - CONTUSION [None]
  - DRUG INEFFECTIVE [None]
  - INSOMNIA [None]
  - BLAST CELLS PRESENT [None]
  - BONE MARROW DISORDER [None]
  - SINUS CONGESTION [None]
  - BONE MARROW RETICULIN FIBROSIS [None]
  - TREMOR [None]
